FAERS Safety Report 12661715 (Version 6)
Quarter: 2017Q1

REPORT INFORMATION
  Report Type: Spontaneous
  Country: US (occurrence: US)
  Receive Date: 20160817
  Receipt Date: 20170330
  Transmission Date: 20170428
  Serious: Yes (Congenital Anomaly, Other)
  Sender: FDA-Public Use
  Company Number: PHHY2015US126341

PATIENT
  Sex: Male

DRUGS (3)
  1. ONDANSETRON DR REDDY [Suspect]
     Active Substance: ONDANSETRON
     Indication: FOETAL EXPOSURE DURING PREGNANCY
     Dosage: MOTHER^S DOSE: 4 MG, UNK
     Route: 064
  2. ONDANSETRON HYDROCHLORIDE. [Suspect]
     Active Substance: ONDANSETRON HYDROCHLORIDE
     Indication: FOETAL EXPOSURE DURING PREGNANCY
     Route: 064
  3. ZOFRAN [Suspect]
     Active Substance: ONDANSETRON HYDROCHLORIDE
     Indication: FOETAL EXPOSURE DURING PREGNANCY
     Route: 064

REACTIONS (12)
  - Choking [Unknown]
  - Foetal exposure during pregnancy [Unknown]
  - Speech disorder [Unknown]
  - Cardiac murmur [Unknown]
  - Conjunctivitis [Unknown]
  - Fall [Unknown]
  - Feeling abnormal [Unknown]
  - Upper respiratory tract infection [Unknown]
  - Cleft palate [Unknown]
  - Cleft lip [Unknown]
  - Head injury [Unknown]
  - Syncope [Unknown]
